FAERS Safety Report 13298572 (Version 1)
Quarter: 2017Q1

REPORT INFORMATION
  Report Type: Spontaneous
  Country: US (occurrence: US)
  Receive Date: 20170306
  Receipt Date: 20170306
  Transmission Date: 20170428
  Serious: No
  Sender: FDA-Public Use
  Company Number: US-BIOGEN-2017BI00363862

PATIENT
  Sex: Female

DRUGS (2)
  1. PLEGRIDY [Suspect]
     Active Substance: PEGINTERFERON BETA-1A
     Indication: MULTIPLE SCLEROSIS
     Route: 065
     Dates: start: 20160313
  2. PLEGRIDY [Suspect]
     Active Substance: PEGINTERFERON BETA-1A
     Route: 065
     Dates: start: 20160328

REACTIONS (2)
  - Irritability [Unknown]
  - Influenza like illness [Unknown]
